FAERS Safety Report 26205390 (Version 1)
Quarter: 2025Q4

REPORT INFORMATION
  Report Type: Spontaneous
  Country: US (occurrence: US)
  Receive Date: 20251228
  Receipt Date: 20251228
  Transmission Date: 20260117
  Serious: No
  Sender: ELI LILLY AND COMPANY
  Company Number: US-ELI_LILLY_AND_COMPANY-US202512017425

PATIENT
  Age: 70 Year

DRUGS (12)
  1. ZEPBOUND [Suspect]
     Active Substance: TIRZEPATIDE
     Indication: Product used for unknown indication
     Dosage: 5 MG, UNKNOWN
     Route: 065
  2. ZEPBOUND [Suspect]
     Active Substance: TIRZEPATIDE
     Indication: Product used for unknown indication
     Dosage: 5 MG, UNKNOWN
     Route: 065
  3. ZEPBOUND [Suspect]
     Active Substance: TIRZEPATIDE
     Indication: Product used for unknown indication
     Dosage: 5 MG, UNKNOWN
     Route: 065
  4. ZEPBOUND [Suspect]
     Active Substance: TIRZEPATIDE
     Indication: Product used for unknown indication
     Dosage: 5 MG, UNKNOWN
     Route: 065
  5. ZEPBOUND [Suspect]
     Active Substance: TIRZEPATIDE
     Dosage: 7.5 MG, UNKNOWN
     Route: 065
  6. ZEPBOUND [Suspect]
     Active Substance: TIRZEPATIDE
     Dosage: 7.5 MG, UNKNOWN
     Route: 065
  7. ZEPBOUND [Suspect]
     Active Substance: TIRZEPATIDE
     Dosage: 7.5 MG, UNKNOWN
     Route: 065
  8. ZEPBOUND [Suspect]
     Active Substance: TIRZEPATIDE
     Dosage: 7.5 MG, UNKNOWN
     Route: 065
  9. ZEPBOUND [Suspect]
     Active Substance: TIRZEPATIDE
     Dosage: 5 MG, UNKNOWN
     Route: 065
  10. ZEPBOUND [Suspect]
     Active Substance: TIRZEPATIDE
     Dosage: 5 MG, UNKNOWN
     Route: 065
  11. ZEPBOUND [Suspect]
     Active Substance: TIRZEPATIDE
     Dosage: 5 MG, UNKNOWN
     Route: 065
  12. ZEPBOUND [Suspect]
     Active Substance: TIRZEPATIDE
     Dosage: 5 MG, UNKNOWN
     Route: 065

REACTIONS (1)
  - Illness [Unknown]
